FAERS Safety Report 7459644-5 (Version None)
Quarter: 2011Q2

REPORT INFORMATION
  Report Type: 
  Country: None (occurrence: None)
  Receive Date: 20110505
  Receipt Date: 20110422
  Transmission Date: 20111010
  Serious: Yes (Hospitalization, Other)
  Sender: FDA-Public Use
  Company Number: PHEH2004US11990

PATIENT
  Sex: Female
  Weight: 47.165 kg

DRUGS (12)
  1. EFFEXOR XR [Concomitant]
     Dosage: 75 MG, QD
  2. SLOW-FE /UNK/ [Concomitant]
     Dosage: 2 TABLETS, QD
  3. M.V.I. [Concomitant]
  4. ATENOLOL [Concomitant]
  5. AREDIA [Suspect]
     Indication: MULTIPLE MYELOMA
     Dosage: 90 MG, QMO
     Route: 042
     Dates: start: 20030130, end: 20040824
  6. VINCRISTINE + ADRIAMYCIN + DEXAMETHASONE [Concomitant]
     Indication: MULTIPLE MYELOMA
     Dosage: 4 COURSES
  7. PROZAC [Concomitant]
  8. AUTOLOGOUS TRANSPLANTATION [Concomitant]
     Dosage: STEM CELL TRANSPLANT
     Dates: start: 20030501, end: 20030501
  9. LORCET-HD [Concomitant]
     Indication: PAIN
     Dosage: 5/500
  10. PRAVASTATIN [Concomitant]
  11. ZOMETA [Suspect]
  12. ASPIRIN [Concomitant]
     Dosage: 81 MG, UNK
     Dates: end: 20040803

REACTIONS (61)
  - INJURY [None]
  - OPEN WOUND [None]
  - INFLAMMATION [None]
  - CERVICITIS [None]
  - METASTATIC NEOPLASM [None]
  - HAEMORRHOIDS [None]
  - METAPLASIA [None]
  - SWELLING FACE [None]
  - BONE DISORDER [None]
  - POSTOPERATIVE WOUND COMPLICATION [None]
  - SWELLING [None]
  - INFECTION [None]
  - HYPOXIA [None]
  - AGITATION [None]
  - PLASMACYTOMA [None]
  - OEDEMA PERIPHERAL [None]
  - MUSCULOSKELETAL STIFFNESS [None]
  - HERPES ZOSTER [None]
  - OSTEOPENIA [None]
  - ORAL CANDIDIASIS [None]
  - OSTEONECROSIS OF JAW [None]
  - ESCHAR [None]
  - FISTULA [None]
  - IMPAIRED HEALING [None]
  - OSTEOMYELITIS ACUTE [None]
  - BLOOD PRESSURE DECREASED [None]
  - VOMITING [None]
  - CERVICITIS HUMAN PAPILLOMA VIRUS [None]
  - BLOOD GLUCOSE INCREASED [None]
  - EATING DISORDER SYMPTOM [None]
  - PAIN [None]
  - BLOODY DISCHARGE [None]
  - WOUND ABSCESS [None]
  - FUNGAL INFECTION [None]
  - CERVICAL DYSPLASIA [None]
  - ARTERIOSCLEROSIS [None]
  - PURULENT DISCHARGE [None]
  - BLOOD POTASSIUM DECREASED [None]
  - INDURATION [None]
  - STAPHYLOCOCCAL INFECTION [None]
  - CONFUSIONAL STATE [None]
  - MYELOMA RECURRENCE [None]
  - OSTEOLYSIS [None]
  - IRITIS [None]
  - OCULAR HYPERAEMIA [None]
  - EYE SWELLING [None]
  - VISION BLURRED [None]
  - COMPRESSION FRACTURE [None]
  - TOOTH LOSS [None]
  - PATHOLOGICAL FRACTURE [None]
  - ANAEMIA [None]
  - ABDOMINAL DISTENSION [None]
  - COLON ADENOMA [None]
  - SCOLIOSIS [None]
  - MENTAL IMPAIRMENT [None]
  - WEIGHT DECREASED [None]
  - ALPHA HAEMOLYTIC STREPTOCOCCAL INFECTION [None]
  - DIARRHOEA [None]
  - NAUSEA [None]
  - HERPES ZOSTER OPHTHALMIC [None]
  - DEFORMITY [None]
